FAERS Safety Report 22641972 (Version 1)
Quarter: 2023Q2

REPORT INFORMATION
  Report Type: Spontaneous
  Country: US (occurrence: US)
  Receive Date: 20230626
  Receipt Date: 20230626
  Transmission Date: 20230722
  Serious: No
  Sender: FDA-Public Use
  Company Number: US-ABBVIE-5304373

PATIENT
  Age: 81 Year
  Sex: Female
  Weight: 79.832 kg

DRUGS (1)
  1. RESTASIS [Suspect]
     Active Substance: CYCLOSPORINE
     Indication: Dry eye
     Dosage: 2 DROPS EACH EYE
     Route: 047
     Dates: start: 20220606, end: 202306

REACTIONS (4)
  - Lacrimation increased [Not Recovered/Not Resolved]
  - Product storage error [Unknown]
  - Eye irritation [Recovered/Resolved]
  - Intentional dose omission [Unknown]

NARRATIVE: CASE EVENT DATE: 20230601
